FAERS Safety Report 10668786 (Version 2)
Quarter: 2015Q2

REPORT INFORMATION
  Report Type: Spontaneous
  Country: US (occurrence: US)
  Receive Date: 20141222
  Receipt Date: 20150511
  Transmission Date: 20150821
  Serious: Yes (Hospitalization, Other)
  Sender: FDA-Public Use
  Company Number: US-PFIZER INC-2014350659

PATIENT
  Age: 66 Year
  Sex: Male

DRUGS (8)
  1. BENAZEPRIL [Concomitant]
     Active Substance: BENAZEPRIL\BENAZEPRIL HYDROCHLORIDE
     Indication: HERPES ZOSTER
     Dosage: 20 MG, UNK
     Dates: start: 20071027
  2. GABAPENTIN. [Concomitant]
     Active Substance: GABAPENTIN
     Indication: HERPES ZOSTER
     Dosage: UNK
     Dates: start: 20071027
  3. WARFARIN [Concomitant]
     Active Substance: WARFARIN
     Indication: HERPES ZOSTER
     Dosage: 5 MG, UNK
     Dates: start: 20071027
  4. DEPO-TESTOSTERONE [Suspect]
     Active Substance: TESTOSTERONE CYPIONATE
     Indication: FATIGUE
  5. DEPO-TESTOSTERONE [Suspect]
     Active Substance: TESTOSTERONE CYPIONATE
     Indication: ASTHENIA
  6. DEPO-TESTOSTERONE [Suspect]
     Active Substance: TESTOSTERONE CYPIONATE
     Indication: HORMONE REPLACEMENT THERAPY
  7. HYDROCODONE/APAP [Concomitant]
     Active Substance: ACETAMINOPHEN\HYDROCODONE
     Indication: HERPES ZOSTER
     Dosage: UNK
     Dates: start: 20071027
  8. DEPO-TESTOSTERONE [Suspect]
     Active Substance: TESTOSTERONE CYPIONATE
     Indication: BLOOD TESTOSTERONE DECREASED
     Dosage: ONE INJECTION MONTHLY
     Dates: start: 20120404, end: 201402

REACTIONS (4)
  - Nausea [Unknown]
  - Myocardial infarction [Unknown]
  - Vomiting [Unknown]
  - Muscular weakness [Unknown]

NARRATIVE: CASE EVENT DATE: 20130221
